FAERS Safety Report 5707196-X (Version None)
Quarter: 2008Q2

REPORT INFORMATION
  Report Type: 
  Country: None (occurrence: None)
  Receive Date: 20080416
  Receipt Date: 20080408
  Transmission Date: 20081010
  Serious: Yes (Hospitalization, Other)
  Sender: FDA-Public Use
  Company Number: JP-MERCK-0803USA03133

PATIENT
  Age: 69 Year
  Sex: Male
  Weight: 54 kg

DRUGS (7)
  1. HYZAAR [Suspect]
     Indication: HYPERTENSION
     Route: 048
     Dates: start: 20080214, end: 20080229
  2. CALBLOCK [Suspect]
     Indication: HYPERTENSION
     Route: 048
  3. ASPIRIN [Concomitant]
     Indication: CORONARY ARTERY DISEASE
     Route: 048
     Dates: end: 20080226
  4. COZAAR [Concomitant]
     Indication: HYPERTENSION
     Route: 048
     Dates: end: 20080213
  5. COZAAR [Concomitant]
     Route: 048
     Dates: start: 20080325
  6. COZAAR [Concomitant]
     Route: 048
     Dates: start: 20080408
  7. PANALDINE [Concomitant]
     Indication: CORONARY ARTERY DISEASE
     Route: 048

REACTIONS (3)
  - CEREBRAL HAEMORRHAGE TRAUMATIC [None]
  - HYPOTENSION [None]
  - LOSS OF CONSCIOUSNESS [None]
